FAERS Safety Report 9414639 (Version 1)
Quarter: 2013Q3

REPORT INFORMATION
  Report Type: Report from Study
  Country: FI (occurrence: FI)
  Receive Date: 20130723
  Receipt Date: 20130723
  Transmission Date: 20140515
  Serious: Yes (Hospitalization, Other)
  Sender: FDA-Public Use
  Company Number: PHHY2013FI026404

PATIENT
  Age: 27 Year
  Sex: Female

DRUGS (8)
  1. LEPONEX [Suspect]
     Indication: SCHIZOPHRENIA, DISORGANISED TYPE
     Dosage: 550 MG, QD (250 MG AND 300MG)
     Dates: start: 200011
  2. LEPONEX [Suspect]
     Dosage: 300 MG, QD (100MG, 3 TABLET PERDAY_
     Dates: start: 201201
  3. LEPONEX [Suspect]
     Dosage: 12.5 MG, ONCE PER DAY
     Dates: start: 20130319
  4. LEPONEX [Suspect]
     Dosage: 400 MG, QD (150 MG AND 250 MG PER DAY)
  5. BISOPROLOL [Concomitant]
     Dosage: 5 MG, ONCE PER DAY, WHEN NEEDED
  6. DIANE NOVA [Concomitant]
     Indication: ACNE
     Dosage: UNK UKN, UNK
  7. CALCICHEW [Concomitant]
     Dosage: UNK
  8. TENOX (TEMAZEPAM) [Concomitant]
     Dosage: 10 MG, ONCE PER DAY

REACTIONS (5)
  - Mental impairment [Unknown]
  - Delusion [Unknown]
  - Hallucination [Unknown]
  - Infection [Unknown]
  - Neutropenia [Recovered/Resolved]
